FAERS Safety Report 7628478-0 (Version None)
Quarter: 2011Q3

REPORT INFORMATION
  Report Type: 
  Country: None (occurrence: None)
  Receive Date: 20110711
  Receipt Date: 20110629
  Transmission Date: 20111222
  Serious: Yes (Other)
  Sender: FDA-Public Use
  Company Number: 2011028472

PATIENT
  Age: 41 Year
  Sex: Female
  Weight: 131.9967 kg

DRUGS (2)
  1. BERINERT (C1 ESTERASE INHIBITOR, HUMAN) [Suspect]
     Indication: ENZYME ABNORMALITY
     Dosage: 2500 IU PRN, 2500 UNITS (50 ML) PRN AT 4ML PER MINUTE INTRAVENOUS (NOT OTHERWISE SPECIFIED)
  2. BERINET (C1 ESTERASE INHIBITOR, HUMAN) [Suspect]

REACTIONS (1)
  - HOT FLUSH [None]
